FAERS Safety Report 11702746 (Version 2)
Quarter: 2015Q4

REPORT INFORMATION
  Report Type: Spontaneous
  Country: US (occurrence: US)
  Receive Date: 20151104
  Receipt Date: 20151110
  Transmission Date: 20160304
  Serious: No
  Sender: FDA-Public Use
  Company Number: US-ELI_LILLY_AND_COMPANY-US201012005059

PATIENT
  Age: 96 Year
  Sex: Female

DRUGS (4)
  1. FORTEO [Suspect]
     Active Substance: TERIPARATIDE
     Dosage: 20 UG, QD
  2. FORTEO [Suspect]
     Active Substance: TERIPARATIDE
     Dosage: 20 UG, QD
  3. FORTEO [Suspect]
     Active Substance: TERIPARATIDE
     Indication: OSTEOPOROSIS
     Dosage: 20 UG, QD
     Route: 065
     Dates: start: 201011
  4. FORTEO [Suspect]
     Active Substance: TERIPARATIDE
     Dosage: 20 UG, QD
     Route: 065

REACTIONS (14)
  - Pain in extremity [Unknown]
  - Foot deformity [Unknown]
  - Back pain [Recovering/Resolving]
  - Feeling abnormal [Unknown]
  - Colitis [Unknown]
  - Speech disorder [Unknown]
  - Ulcer [Unknown]
  - Pain [Unknown]
  - Memory impairment [Unknown]
  - Peripheral vascular disorder [Recovering/Resolving]
  - Abdominal discomfort [Unknown]
  - Paraesthesia [Unknown]
  - Pain of skin [Unknown]
  - Drug dose omission [Recovered/Resolved]

NARRATIVE: CASE EVENT DATE: 20110929
